FAERS Safety Report 4648399-5 (Version None)
Quarter: 2005Q2

REPORT INFORMATION
  Report Type: 
  Country: None (occurrence: None)
  Receive Date: 20050427
  Receipt Date: 20050418
  Transmission Date: 20051028
  Serious: Yes (Other)
  Sender: FDA-Public Use
  Company Number: 2005-04-1197

PATIENT
  Age: 2 Month
  Sex: Female

DRUGS (2)
  1. INTERFERON ALFA-2B INJECTABLE [Suspect]
     Indication: DISORDER OF ORBIT
     Dosage: 3 MIU/M~2/QD SUBCUTANEOUS
     Route: 058
  2. INTERFERON ALFA-2B INJECTABLE [Suspect]
     Indication: HAEMANGIOMA
     Dosage: 3 MIU/M~2/QD SUBCUTANEOUS
     Route: 058

REACTIONS (7)
  - AGITATION [None]
  - DIPLEGIA [None]
  - HYPERTONIA [None]
  - MOTOR DYSFUNCTION [None]
  - PYREXIA [None]
  - SPASTIC PARALYSIS [None]
  - TRANSAMINASES INCREASED [None]
